FAERS Safety Report 4884055-6 (Version None)
Quarter: 2006Q1

REPORT INFORMATION
  Report Type: 
  Country: None (occurrence: None)
  Receive Date: 20060118
  Receipt Date: 20051005
  Transmission Date: 20060701
  Serious: Yes (Hospitalization)
  Sender: FDA-Public Use
  Company Number: US-MERCK-0510USA04340

PATIENT
  Age: 60 Year
  Sex: Female
  Weight: 102 kg

DRUGS (6)
  1. VIOXX [Suspect]
     Indication: ARTHRITIS
     Route: 048
     Dates: start: 19990901, end: 19991001
  2. PRILOSEC [Concomitant]
     Indication: GASTROOESOPHAGEAL REFLUX DISEASE
     Route: 065
  3. LIPITOR [Concomitant]
     Route: 065
  4. MONOPRIL [Concomitant]
     Route: 065
  5. PREMARIN [Concomitant]
     Route: 065
  6. PROVERA [Concomitant]
     Route: 065

REACTIONS (10)
  - ANGINA UNSTABLE [None]
  - ARTERIAL RESTENOSIS [None]
  - CARDIAC FAILURE CONGESTIVE [None]
  - CARDIOVASCULAR DISORDER [None]
  - COLONIC POLYP [None]
  - CORONARY ARTERY DISEASE [None]
  - DIARRHOEA [None]
  - FAECES DISCOLOURED [None]
  - FATIGUE [None]
  - ULNAR NERVE INJURY [None]
